FAERS Safety Report 19501254 (Version 1)
Quarter: 2021Q3

REPORT INFORMATION
  Report Type: Spontaneous
  Country: US (occurrence: US)
  Receive Date: 20210707
  Receipt Date: 20210707
  Transmission Date: 20211014
  Serious: Yes (Hospitalization, Other)
  Sender: FDA-Public Use
  Company Number: US-AUROBINDO-AUR-APL-2021-028517

PATIENT
  Age: 38 Year
  Sex: Male

DRUGS (2)
  1. ACETYLCYSTEINE. [Concomitant]
     Active Substance: ACETYLCYSTEINE
     Indication: PRODUCT USED FOR UNKNOWN INDICATION
     Dosage: UNK
     Route: 065
  2. PARACETAMOL TABLET 500MG [Suspect]
     Active Substance: ACETAMINOPHEN
     Indication: PRODUCT USED FOR UNKNOWN INDICATION
     Dosage: UNK (200 TABLETS)
     Route: 065

REACTIONS (7)
  - Renal impairment [Recovered/Resolved]
  - Urine output decreased [Unknown]
  - Transaminases increased [Unknown]
  - Overdose [Unknown]
  - Nausea [Unknown]
  - Haemolytic anaemia [Unknown]
  - Methaemoglobinaemia [Unknown]
